FAERS Safety Report 7041705-6 (Version None)
Quarter: 2010Q4

REPORT INFORMATION
  Report Type: 
  Country: None (occurrence: None)
  Receive Date: 20101013
  Receipt Date: 20091209
  Transmission Date: 20110411
  Serious: No
  Sender: FDA-Public Use
  Company Number: US-ASTRAZENECA-2009SE27678

PATIENT
  Age: 75 Year
  Sex: Male
  Weight: 113.4 kg

DRUGS (9)
  1. SYMBICORT [Suspect]
     Indication: DYSPNOEA
     Dosage: 80 MCG
     Route: 055
  2. SPIRIVA [Concomitant]
  3. ATENOLOL [Concomitant]
  4. MONOPRIL [Concomitant]
  5. COUMADIN [Concomitant]
  6. FLAX SEED [Concomitant]
  7. ASPIRIN [Concomitant]
  8. NEXIUM [Concomitant]
  9. NASONEX [Concomitant]

REACTIONS (2)
  - EPISTAXIS [None]
  - NASAL DRYNESS [None]
